FAERS Safety Report 9865280 (Version 3)
Quarter: 2014Q1

REPORT INFORMATION
  Report Type: Report from Study
  Country: ES (occurrence: ES)
  Receive Date: 20140203
  Receipt Date: 20140319
  Transmission Date: 20141002
  Serious: Yes (Hospitalization, Other)
  Sender: FDA-Public Use
  Company Number: PHHY2014ES010019

PATIENT
  Age: 46 Year
  Sex: Male
  Weight: 59.8 kg

DRUGS (22)
  1. IRINOTECAN [Suspect]
     Indication: COLORECTAL CANCER METASTATIC
     Dosage: 316.8 MG, BIW
     Route: 042
     Dates: start: 20130403
  2. IRINOTECAN [Suspect]
     Indication: RECTAL CANCER
     Dosage: 264 MG, UNK
     Route: 042
     Dates: start: 20130424
  3. IRINOTECAN [Suspect]
     Dosage: 211.20 MG, UNK
     Route: 042
     Dates: start: 20130724
  4. IRINOTECAN [Suspect]
     Dosage: 211.20 MG, UNK
     Route: 042
     Dates: start: 20131113
  5. 5-FLUOROURACIL [Suspect]
     Indication: COLORECTAL CANCER METASTATIC
     Dosage: 704 MG, BIW
     Route: 042
     Dates: start: 20130403
  6. 5-FLUOROURACIL [Suspect]
     Indication: RECTAL CANCER
     Dosage: 352 MG, UNK
     Route: 042
     Dates: start: 20130424
  7. 5-FLUOROURACIL [Suspect]
     Dosage: 2816 MG, UNK
     Route: 042
     Dates: start: 20130724
  8. 5-FLUOROURACIL [Suspect]
     Dosage: 2816 MG, UNK
     Route: 042
     Dates: start: 20131113
  9. LEUCOVORIN CALCIUM [Suspect]
     Indication: COLORECTAL CANCER METASTATIC
     Dosage: 704 MG, BIW
     Route: 042
     Dates: start: 20130403
  10. LEUCOVORIN CALCIUM [Suspect]
     Indication: RECTAL CANCER
     Dosage: 528 MG, UNK
     Route: 042
     Dates: start: 20130424
  11. LEUCOVORIN CALCIUM [Suspect]
     Dosage: 528 MG, UNK
     Route: 042
     Dates: start: 20130724
  12. LEUCOVORIN CALCIUM [Suspect]
     Dosage: 528 MG, UNK
     Route: 042
     Dates: start: 20131113
  13. ZYPREXA [Concomitant]
     Indication: ANXIETY
     Dosage: 5 MG, UNK
     Route: 048
  14. FORTASEC [Concomitant]
     Indication: DIARRHOEA
     Dosage: 1 DF, UNK
     Route: 048
  15. PRIMPERAN [Concomitant]
     Indication: NAUSEA
     Dosage: 10 MG, UNK
     Route: 048
     Dates: start: 20130406, end: 20130418
  16. PRIMPERAN [Concomitant]
     Dosage: 10 MG, UNK
     Route: 048
     Dates: start: 20130507
  17. AUGMENTINE [Concomitant]
     Indication: ECZEMA INFECTED
     Dosage: 875 MG, UNK
     Route: 048
     Dates: start: 20130502, end: 20130508
  18. DIPROGENTA [Concomitant]
     Indication: ECZEMA INFECTED
     Route: 061
     Dates: start: 20130502, end: 20130508
  19. IBUPROFEN [Concomitant]
     Indication: MUCOSAL INFLAMMATION
     Dosage: 600 MG, UNK
     Route: 048
     Dates: start: 20130406, end: 20130416
  20. MYCOSTATIN [Concomitant]
     Indication: MUCOSAL INFLAMMATION
     Route: 048
     Dates: start: 20130502
  21. CEFTRIAXONE SODIUM [Concomitant]
     Indication: PYREXIA
     Dosage: 1 G, UNK
     Route: 042
     Dates: start: 20130807, end: 20130814
  22. OMEPRAZOLE [Concomitant]
     Indication: PROPHYLAXIS AGAINST GASTROINTESTINAL ULCER
     Dosage: 20 MG, UNK
     Route: 048
     Dates: start: 20130814, end: 20130828

REACTIONS (9)
  - Renal failure acute [Recovered/Resolved]
  - Hyponatraemia [Recovered/Resolved]
  - Vomiting [Recovered/Resolved]
  - Alanine aminotransferase increased [Recovered/Resolved]
  - Diarrhoea [Recovered/Resolved]
  - Asthenia [Recovered/Resolved]
  - Nausea [Recovered/Resolved]
  - Muscle spasms [Recovered/Resolved]
  - Aspartate aminotransferase increased [Recovered/Resolved]
